FAERS Safety Report 19657861 (Version 1)
Quarter: 2021Q3

REPORT INFORMATION
  Report Type: Spontaneous
  Country: US (occurrence: US)
  Receive Date: 20210804
  Receipt Date: 20210804
  Transmission Date: 20211014
  Serious: Yes (Death, Hospitalization, Other)
  Sender: FDA-Public Use
  Company Number: US-OTSUKA-2021_027016

PATIENT
  Age: 94 Year
  Sex: Male
  Weight: 51.4 kg

DRUGS (14)
  1. VENETOCLAX. [Suspect]
     Active Substance: VENETOCLAX
     Dosage: 200 MG, QD
     Route: 048
     Dates: start: 20210201, end: 20210621
  2. FLUTICASONE PROPIONATE. [Concomitant]
     Active Substance: FLUTICASONE PROPIONATE
     Indication: NASAL CONGESTION
     Dosage: 100 ?G, BID
     Route: 045
     Dates: start: 20140110
  3. DEXAMETHASONE. [Concomitant]
     Active Substance: DEXAMETHASONE
     Indication: PREMEDICATION
     Dosage: 10 MG DAYS 1?5 OF EACH 28 DAY CYCLE OF DECITABINE
     Route: 042
     Dates: start: 20210104
  4. VENETOCLAX. [Suspect]
     Active Substance: VENETOCLAX
     Dosage: 400 MG, QD
     Route: 048
     Dates: start: 20210106, end: 20210131
  5. LOSARTAN. [Concomitant]
     Active Substance: LOSARTAN
     Indication: HYPERTENSION
     Dosage: 50 MG
     Route: 048
     Dates: start: 20160107
  6. ACYCLOVIR [ACICLOVIR] [Concomitant]
     Active Substance: ACYCLOVIR
     Indication: TUMOUR LYSIS SYNDROME
     Dosage: 400 MG
     Route: 048
     Dates: start: 20210104
  7. FLOMAX [MORNIFLUMATE] [Concomitant]
     Active Substance: MORNIFLUMATE
     Indication: BENIGN PROSTATIC HYPERPLASIA
     Dosage: 0.4 MG, QD
     Route: 048
     Dates: start: 20140102
  8. LEVOFLOXACIN. [Concomitant]
     Active Substance: LEVOFLOXACIN
     Indication: PYREXIA
     Dosage: 500 MG
     Route: 048
     Dates: start: 20210104
  9. VENETOCLAX. [Suspect]
     Active Substance: VENETOCLAX
     Dosage: 200 MG, QD
     Route: 048
     Dates: start: 20210105, end: 20210105
  10. DACOGEN [Suspect]
     Active Substance: DECITABINE
     Indication: ACUTE MYELOID LEUKAEMIA
     Dosage: 20 MG/M2 IV DAYS 1?5 OF EACH 28 DAY CYCLE
     Route: 042
     Dates: start: 20210104, end: 20210611
  11. VENETOCLAX. [Suspect]
     Active Substance: VENETOCLAX
     Indication: ACUTE MYELOID LEUKAEMIA
     Dosage: 100 MG, QD
     Route: 048
     Dates: start: 20210104, end: 20210104
  12. PALONOSETRON. [Concomitant]
     Active Substance: PALONOSETRON HYDROCHLORIDE
     Indication: PREMEDICATION
     Dosage: 0.25 MG, QD (DAY 1 OF EACH CYCLE OF DECITABINE)
     Route: 042
     Dates: start: 20210104
  13. LASIX [Concomitant]
     Active Substance: FUROSEMIDE
     Indication: CARDIAC FAILURE
     Dosage: 20 MG, QD
     Route: 048
     Dates: start: 20210503
  14. FLUCONAZOLE. [Concomitant]
     Active Substance: FLUCONAZOLE
     Indication: FEBRILE NEUTROPENIA
     Dosage: 400 MG, BID
     Route: 048
     Dates: start: 20210121

REACTIONS (5)
  - Death [Fatal]
  - Cardiac failure congestive [Not Recovered/Not Resolved]
  - Product use in unapproved indication [Unknown]
  - Deep vein thrombosis [Unknown]
  - Platelet count decreased [Unknown]

NARRATIVE: CASE EVENT DATE: 20210104
